FAERS Safety Report 17801482 (Version 1)
Quarter: 2020Q2

REPORT INFORMATION
  Report Type: Spontaneous
  Country: US (occurrence: US)
  Receive Date: 20200518
  Receipt Date: 20200518
  Transmission Date: 20200714
  Serious: No
  Sender: FDA-Public Use
  Company Number: None

PATIENT
  Age: 13 Year
  Sex: Male
  Weight: 42.8 kg

DRUGS (1)
  1. ADVANCED HAND SANITIZER [Suspect]
     Active Substance: ALCOHOL

REACTIONS (2)
  - Accidental exposure to product by child [None]
  - Poisoning [None]
